FAERS Safety Report 11899384 (Version 1)
Quarter: 2016Q1

REPORT INFORMATION
  Report Type: Spontaneous
  Country: FR (occurrence: FR)
  Receive Date: 20160108
  Receipt Date: 20160108
  Transmission Date: 20160526
  Serious: Yes (Other)
  Sender: FDA-Public Use
  Company Number: FR-FERRINGPH-2015FE04993

PATIENT

DRUGS (14)
  1. KETAMINE [Suspect]
     Active Substance: KETAMINE
     Indication: PRODUCT USED FOR UNKNOWN INDICATION
     Dosage: UNK
     Route: 042
     Dates: start: 20151105, end: 20151112
  2. NOREPINEPHRINE [Concomitant]
     Active Substance: NOREPINEPHRINE\NOREPINEPHRINE BITARTRATE
     Dosage: UNK
     Dates: start: 20151105
  3. AMOXICILINA + ACIDO CLAVULANICO    /00852501/ [Concomitant]
     Dosage: UNK
     Dates: start: 20151105, end: 20151110
  4. PARACETAMOL [Concomitant]
     Active Substance: ACETAMINOPHEN
     Dosage: UNK
     Dates: end: 20151110
  5. METHYLPREDNISOLON                  /00049601/ [Concomitant]
     Active Substance: METHYLPREDNISOLONE
     Dosage: 20 MG, 2 TIMES DAILY
     Dates: start: 20151105, end: 20151109
  6. PENTHOTAL [Concomitant]
     Active Substance: THIOPENTAL SODIUM
     Dosage: UNK
     Dates: start: 20151105
  7. VANCOMYCIN                         /00314402/ [Concomitant]
     Active Substance: VANCOMYCIN
     Dosage: UNK
     Dates: start: 20151107, end: 20151109
  8. MANNITOL. [Concomitant]
     Active Substance: MANNITOL
     Dosage: UNK
     Dates: start: 20151109, end: 20151111
  9. MINIRIN [Suspect]
     Active Substance: DESMOPRESSIN ACETATE
     Indication: PRODUCT USED FOR UNKNOWN INDICATION
     Dosage: UNK
     Route: 042
     Dates: start: 20151109, end: 20151116
  10. HEPARIN [Concomitant]
     Active Substance: HEPARIN SODIUM
     Dosage: UNK
     Dates: start: 20151105
  11. MANNITOL. [Concomitant]
     Active Substance: MANNITOL
     Dosage: UNK
     Dates: start: 20151105, end: 20151105
  12. MIDAZOLAM                          /00634102/ [Concomitant]
     Active Substance: MIDAZOLAM\MIDAZOLAM HYDROCHLORIDE
     Dosage: UNK
     Dates: start: 20151105
  13. SUFENTANIL                         /00723502/ [Concomitant]
     Dosage: UNK
     Dates: start: 20151105
  14. OMEPRAZOLE                         /00661202/ [Concomitant]
     Dosage: UNK
     Dates: start: 20151105

REACTIONS (1)
  - Hepatitis cholestatic [Recovered/Resolved]

NARRATIVE: CASE EVENT DATE: 20151112
